FAERS Safety Report 6103437-8 (Version None)
Quarter: 2009Q1

REPORT INFORMATION
  Report Type: 
  Country: None (occurrence: None)
  Receive Date: 20090304
  Receipt Date: 20090212
  Transmission Date: 20090719
  Serious: Yes (Death)
  Sender: FDA-Public Use
  Company Number: 1000003737

PATIENT
  Age: 48 Year
  Sex: Male

DRUGS (6)
  1. ESCITALOPRAM [Suspect]
     Dosage: INGESTES + ASPIRATED
  2. ALPRAZOLAM [Suspect]
  3. LAMOTRIGINE [Suspect]
     Dosage: INGESTED + ASPIRATED
  4. GABAPENTIN [Suspect]
     Indication: DEPRESSION
     Dosage: INGESTED + ASPIRATED
  5. ETHANOL [Suspect]
     Dosage: INGESTED + ASPIRATED
  6. CARBON BLACK [Suspect]
     Dosage: INGESTED + ASPIRATED

REACTIONS (2)
  - COMPLETED SUICIDE [None]
  - MULTIPLE DRUG OVERDOSE INTENTIONAL [None]
